FAERS Safety Report 6866325-5 (Version None)
Quarter: 2010Q2

REPORT INFORMATION
  Report Type: 
  Country: None (occurrence: None)
  Receive Date: 20100602
  Receipt Date: 20090601
  Transmission Date: 20101027
  Serious: Yes (Hospitalization)
  Sender: FDA-Public Use
  Company Number: 196684USA

PATIENT
  Age: 8 Year
  Sex: Female

DRUGS (1)
  1. ACICLOVIR 200 MG CAPSULES (ACICLOVIR) [Suspect]
     Indication: HERPES SIMPLEX
     Dosage: 2400 MG (800 MG, 3 IN 1 D), ORAL
     Route: 048
     Dates: start: 20090526, end: 20090529

REACTIONS (6)
  - CONVULSION [None]
  - DISORIENTATION [None]
  - DIZZINESS [None]
  - EYE ROLLING [None]
  - GAIT DISTURBANCE [None]
  - HEADACHE [None]
